FAERS Safety Report 9517611 (Version 1)
Quarter: 2013Q3

REPORT INFORMATION
  Report Type: Spontaneous
  Country: BR (occurrence: BR)
  Receive Date: 20130912
  Receipt Date: 20130912
  Transmission Date: 20140515
  Serious: Yes (Other)
  Sender: FDA-Public Use
  Company Number: BR-AMGEN-BRASP2013063337

PATIENT
  Sex: Female

DRUGS (3)
  1. PROLIA [Suspect]
     Indication: OSTEOPOROSIS
     Dosage: 60 MG/1.0ML, Q6MO
     Route: 042
  2. ZOLEDRONIC ACID [Concomitant]
  3. RISEDRONATE [Concomitant]

REACTIONS (1)
  - Osteonecrosis of jaw [Unknown]
